FAERS Safety Report 7289490-7 (Version None)
Quarter: 2011Q1

REPORT INFORMATION
  Report Type: 
  Country: None (occurrence: None)
  Receive Date: 20110211
  Receipt Date: 20110210
  Transmission Date: 20110831
  Serious: Yes (Other)
  Sender: FDA-Public Use
  Company Number: CA-MERCK-1102USA01272

PATIENT
  Age: 57 Year
  Sex: Female

DRUGS (6)
  1. FOSAMAX PLUS D [Suspect]
     Route: 047
  2. PREDNISONE [Concomitant]
     Route: 065
  3. INDOMETHACIN [Concomitant]
     Route: 065
  4. PLAQUENIL [Concomitant]
     Route: 065
  5. SYNTHROID [Concomitant]
     Route: 065
  6. REMICADE [Suspect]
     Route: 042

REACTIONS (3)
  - CONSTIPATION [None]
  - DECREASED APPETITE [None]
  - WEIGHT DECREASED [None]
